FAERS Safety Report 14695863 (Version 1)
Quarter: 2018Q1

REPORT INFORMATION
  Report Type: Spontaneous
  Country: FR (occurrence: FR)
  Receive Date: 20180329
  Receipt Date: 20180329
  Transmission Date: 20180509
  Serious: Yes (Other)
  Sender: FDA-Public Use
  Company Number: FR-GE HEALTHCARE LIFE SCIENCES-2018CSU000782

PATIENT

DRUGS (2)
  1. APRANAX                            /00256201/ [Concomitant]
     Active Substance: NAPROXEN
  2. VISIPAQUE [Suspect]
     Active Substance: IODIXANOL
     Indication: SYSTEMIC INFLAMMATORY RESPONSE SYNDROME
     Dosage: 129 ML, SINGLE
     Route: 065
     Dates: start: 20180214, end: 20180214

REACTIONS (8)
  - Eczema [Not Recovered/Not Resolved]
  - Skin reaction [Not Recovered/Not Resolved]
  - Peripheral swelling [Not Recovered/Not Resolved]
  - Pruritus [Not Recovered/Not Resolved]
  - Paraesthesia [Not Recovered/Not Resolved]
  - Urticaria [Not Recovered/Not Resolved]
  - Skin exfoliation [Not Recovered/Not Resolved]
  - Dermatitis bullous [Not Recovered/Not Resolved]

NARRATIVE: CASE EVENT DATE: 20180216
